FAERS Safety Report 12176692 (Version 1)
Quarter: 2016Q1

REPORT INFORMATION
  Report Type: Spontaneous
  Country: US (occurrence: US)
  Receive Date: 20160314
  Receipt Date: 20160314
  Transmission Date: 20160526
  Serious: No
  Sender: FDA-Public Use
  Company Number: US-AKORN PHARMACEUTICALS-2015AKN00528

PATIENT
  Age: 42 Year
  Sex: Female
  Weight: 89.8 kg

DRUGS (8)
  1. ALBUTEROL. [Concomitant]
     Active Substance: ALBUTEROL
  2. BETAMETHASONE VALERATE. [Concomitant]
     Active Substance: BETAMETHASONE VALERATE
  3. NASONEX [Concomitant]
     Active Substance: MOMETASONE FUROATE
  4. MYORISAN [Suspect]
     Active Substance: ISOTRETINOIN
     Dosage: 20 UNK, UNK
  5. MYORISAN [Suspect]
     Active Substance: ISOTRETINOIN
     Dosage: 40 MG, 1X/DAY
  6. METROGEL [Concomitant]
     Active Substance: METRONIDAZOLE
  7. MYORISAN [Suspect]
     Active Substance: ISOTRETINOIN
     Indication: ACNE
     Dosage: 40 MG, 2X/DAY
     Dates: start: 20150807
  8. MYORISAN [Suspect]
     Active Substance: ISOTRETINOIN
     Dosage: 20 MG, 1X/DAY
     Dates: start: 201509, end: 20150915

REACTIONS (2)
  - Visual impairment [Recovering/Resolving]
  - Headache [Recovering/Resolving]

NARRATIVE: CASE EVENT DATE: 201508
